FAERS Safety Report 4358761-6 (Version None)
Quarter: 2004Q2

REPORT INFORMATION
  Report Type: 
  Country: None (occurrence: None)
  Receive Date: 20040517
  Receipt Date: 20040504
  Transmission Date: 20050107
  Serious: Yes (Life-Threatening)
  Sender: FDA-Public Use
  Company Number: 200411856FR

PATIENT
  Age: 51 Year
  Sex: Male
  Weight: 90 kg

DRUGS (3)
  1. LOVENOX [Suspect]
     Indication: MYOCARDIAL INFARCTION
     Route: 058
     Dates: start: 20030921
  2. ZOCOR [Suspect]
     Route: 048
     Dates: start: 20030922
  3. PLAVIX [Suspect]
     Route: 048
     Dates: start: 20030921

REACTIONS (1)
  - CORONARY ARTERY REOCCLUSION [None]
